FAERS Safety Report 9239331 (Version 2)
Quarter: 2013Q2

REPORT INFORMATION
  Report Type: Spontaneous
  Country: FR (occurrence: FR)
  Receive Date: 20130418
  Receipt Date: 20130503
  Transmission Date: 20140414
  Serious: Yes (Other)
  Sender: FDA-Public Use
  Company Number: FR-UCBSA-082615

PATIENT
  Age: 75 Year
  Sex: Female

DRUGS (10)
  1. KEPPRA [Suspect]
     Indication: EPILEPSY
     Dosage: UNKNOWN DOSE
     Route: 048
     Dates: start: 20130304, end: 20130317
  2. KEPPRA [Suspect]
     Indication: CONVULSION
     Dosage: UNKNOWN DOSE
     Route: 048
     Dates: start: 20130304, end: 20130317
  3. AMLOR [Concomitant]
     Indication: HYPERTENSION
     Dosage: UNKNOWN DOSE
  4. BIPRETERAX [Concomitant]
     Indication: HYPERTENSION
     Dosage: UNKNOWN DOSE
  5. HEMIGOXINE [Concomitant]
     Indication: ATRIAL FIBRILLATION
     Dosage: UNKNOWN DOSE
  6. LEVOTHYROX [Concomitant]
     Indication: THYROID DISORDER
     Dosage: STRENGTH: 75 MG
  7. SERETIDE DISKUS [Concomitant]
     Indication: CHRONIC OBSTRUCTIVE PULMONARY DISEASE
     Dosage: UNKNOWN DOSE
  8. SERETIDE DISKUS [Concomitant]
     Indication: BRONCHIECTASIS
     Dosage: UNKNOWN DOSE
  9. PREDNISONE [Concomitant]
     Indication: CHRONIC OBSTRUCTIVE PULMONARY DISEASE
     Dosage: DOSE: 1 MG
  10. PREDNISONE [Concomitant]
     Indication: BRONCHIECTASIS
     Dosage: DOSE: 1 MG

REACTIONS (1)
  - Acute generalised exanthematous pustulosis [Recovered/Resolved]
